FAERS Safety Report 6901245-9 (Version None)
Quarter: 2010Q3

REPORT INFORMATION
  Report Type: 
  Country: None (occurrence: None)
  Receive Date: 20100803
  Receipt Date: 20100723
  Transmission Date: 20110219
  Serious: Yes (Hospitalization, Disabling)
  Sender: FDA-Public Use
  Company Number: DE-SANOFI-AVENTIS-2010SA037641

PATIENT
  Age: 70 Year
  Sex: Female

DRUGS (6)
  1. MULTAQ [Suspect]
     Indication: ATRIAL FIBRILLATION
     Route: 048
     Dates: start: 20100624, end: 20100630
  2. CORDAREX [Concomitant]
     Indication: CARDIOVERSION
     Route: 042
     Dates: start: 20100622, end: 20100622
  3. MARCUMAR [Concomitant]
     Indication: ATRIAL FIBRILLATION
     Route: 048
  4. ALLOPURINOL [Concomitant]
     Indication: HYPERURICAEMIA
     Route: 048
  5. BEZAFIBRATE [Concomitant]
     Route: 048
  6. RAMIPRIL [Concomitant]
     Indication: HYPERTENSION
     Route: 048

REACTIONS (7)
  - APHASIA [None]
  - CONFUSIONAL STATE [None]
  - DELIRIUM [None]
  - PRURITUS [None]
  - PSYCHOTIC BEHAVIOUR [None]
  - PYREXIA [None]
  - RASH MACULO-PAPULAR [None]
